FAERS Safety Report 7705026-8 (Version None)
Quarter: 2011Q3

REPORT INFORMATION
  Report Type: 
  Country: None (occurrence: None)
  Receive Date: 20110823
  Receipt Date: 20110819
  Transmission Date: 20111222
  Serious: Yes (Death, Hospitalization)
  Sender: FDA-Public Use
  Company Number: FR-PFIZER INC-HQWYE871530JUN05

PATIENT
  Age: 83 Year
  Sex: Male

DRUGS (9)
  1. CORDARONE [Suspect]
     Dosage: UNSPECIFIED
     Route: 065
  2. ACETAMINOPHEN [Suspect]
     Dosage: 500 MG, 2X/DAY
     Route: 048
     Dates: end: 20050408
  3. ZOLOFT [Suspect]
     Dosage: 1 IU, 1X/DAY
     Route: 065
     Dates: start: 20050401, end: 20050408
  4. LORAZEPAM [Concomitant]
     Route: 065
  5. ASPIRIN [Suspect]
     Dosage: UNSPECIFIED
     Route: 065
  6. VOLTAREN [Suspect]
     Dosage: 50 MG, 1X/DAY
     Route: 065
     Dates: end: 20050408
  7. TRIMEBUTINE [Suspect]
     Dosage: 1 IU, 1X/DAY
     Route: 065
     Dates: end: 20050408
  8. DIGOXIN [Suspect]
     Dosage: .125 MG, 1X/DAY
     Route: 065
     Dates: end: 20050408
  9. PLAVIX [Suspect]
     Dosage: 75 MG, 1X/DAY
     Route: 048
     Dates: end: 20050408

REACTIONS (10)
  - LUNG DISORDER [None]
  - URINE SODIUM DECREASED [None]
  - CONFUSIONAL STATE [None]
  - PYREXIA [None]
  - QUADRIPLEGIA [None]
  - NERVOUS SYSTEM DISORDER [None]
  - HAEMATOCRIT DECREASED [None]
  - HYPONATRAEMIA [None]
  - ALTERED STATE OF CONSCIOUSNESS [None]
  - INFLAMMATION [None]
